FAERS Safety Report 24984216 (Version 1)
Quarter: 2025Q1

REPORT INFORMATION
  Report Type: Spontaneous
  Country: CA (occurrence: CA)
  Receive Date: 20250219
  Receipt Date: 20250219
  Transmission Date: 20250408
  Serious: Yes (Hospitalization)
  Sender: ROCHE
  Company Number: CA-002147023-NVSC2025CA024112

PATIENT
  Age: 77 Year
  Sex: Male
  Weight: 72 kg

DRUGS (19)
  1. OMALIZUMAB [Suspect]
     Active Substance: OMALIZUMAB
     Indication: Asthma
     Dosage: 300 MG, Q4W
     Route: 058
  2. OMALIZUMAB [Suspect]
     Active Substance: OMALIZUMAB
     Dosage: 300 MG, Q4W
     Route: 058
  3. OMALIZUMAB [Suspect]
     Active Substance: OMALIZUMAB
     Route: 058
  4. OMALIZUMAB [Suspect]
     Active Substance: OMALIZUMAB
     Route: 058
  5. OMALIZUMAB [Suspect]
     Active Substance: OMALIZUMAB
     Dosage: 300 MG, Q4W
     Route: 058
  6. PREDNISONE [Suspect]
     Active Substance: PREDNISONE
     Indication: Asthma
     Dosage: 8 MG, BIW
     Route: 065
  7. PREDNISONE [Suspect]
     Active Substance: PREDNISONE
     Dosage: 1 DOSAGE FORM, QD
     Route: 048
  8. ALVESCO [Concomitant]
     Active Substance: CICLESONIDE
     Indication: Asthma
     Dosage: 2 DOSAGE FORM, QD (AEROSOL, METERED DOSE)
     Route: 065
  9. BREO ELLIPTA [Concomitant]
     Active Substance: FLUTICASONE FUROATE\VILANTEROL TRIFENATATE
     Indication: Asthma
     Route: 065
  10. BREO ELLIPTA [Concomitant]
     Active Substance: FLUTICASONE FUROATE\VILANTEROL TRIFENATATE
     Dosage: 2 DOSAGE FORM, QD (INHALATION)
     Route: 050
  11. FINASTERIDE [Concomitant]
     Active Substance: FINASTERIDE
     Indication: Benign prostatic hyperplasia
     Dosage: 1 DOSAGE FORM, QD
     Route: 050
  12. HYDROCHLOROTHIAZIDE [Concomitant]
     Active Substance: HYDROCHLOROTHIAZIDE
     Indication: Hypertension
     Dosage: 1 DOSAGE FORM, QD
     Route: 050
  13. METFORMIN [Concomitant]
     Active Substance: METFORMIN HYDROCHLORIDE
     Indication: Type 2 diabetes mellitus
     Dosage: 4 DOSAGE FORM, QD
     Route: 050
  14. METFORMIN [Concomitant]
     Active Substance: METFORMIN HYDROCHLORIDE
     Dosage: 4 DOSAGE FORM, QD
     Route: 065
  15. VALSARTAN [Concomitant]
     Active Substance: VALSARTAN
     Indication: Hypertension
     Dosage: 1 DOSAGE FORM, QD
     Route: 050
  16. SPIRIVA [Concomitant]
     Active Substance: TIOTROPIUM BROMIDE MONOHYDRATE
     Indication: Asthma
     Dosage: 2 DOSAGE FORM, QD
     Route: 050
  17. SYNTHROID [Concomitant]
     Active Substance: LEVOTHYROXINE SODIUM
     Indication: Hypothyroidism
     Dosage: 1 DOSAGE FORM, QD
     Route: 050
  18. TAMSULOSIN [Concomitant]
     Active Substance: TAMSULOSIN
     Indication: Benign prostatic hyperplasia
     Dosage: 1 DOSAGE FORM, QD
     Route: 050
  19. VENTOLIN [Concomitant]
     Active Substance: ALBUTEROL SULFATE
     Indication: Asthma
     Route: 050

REACTIONS (7)
  - Asthma [Unknown]
  - Bronchitis [Unknown]
  - Dyspnoea [Unknown]
  - Middle insomnia [Unknown]
  - Obstructive airways disorder [Unknown]
  - Pleural fibrosis [Unknown]
  - Weight decreased [Unknown]
